FAERS Safety Report 8220768-6 (Version None)
Quarter: 2012Q1

REPORT INFORMATION
  Report Type: 
  Country: None (occurrence: None)
  Receive Date: 20120320
  Receipt Date: 20120312
  Transmission Date: 20120608
  Serious: Yes (Death, Hospitalization, Other)
  Sender: FDA-Public Use
  Company Number: FR-UCBSA-052625

PATIENT
  Age: 89 Year
  Sex: Female

DRUGS (9)
  1. PROZAC [Concomitant]
  2. AUGMENTIN '125' [Concomitant]
     Indication: LUNG DISORDER
     Dates: start: 20120119, end: 20120101
  3. KEPPRA [Suspect]
     Indication: CONVULSION
     Dosage: PROGRESSIVELY DECREASED BEFORE DISCONTINUATION
     Route: 048
     Dates: start: 20100801, end: 20120203
  4. LASIX [Suspect]
     Indication: CARDIAC FAILURE
     Dosage: PROGRESSIVELY DECREASED BEFORE DISCONTINUATION
     Route: 048
     Dates: end: 20120207
  5. BISOPROLOL FUMARATE [Concomitant]
     Indication: HYPERTENSION
  6. ZOLPIDEM [Concomitant]
  7. GLUCOPHAGE [Concomitant]
     Indication: DIABETES MELLITUS
  8. GLIMEPIRIDE [Concomitant]
     Indication: DIABETES MELLITUS
  9. ONGLYZA [Concomitant]
     Indication: DIABETES MELLITUS

REACTIONS (8)
  - SKIN ULCER [None]
  - PURPURA [None]
  - THROMBOCYTOPENIA [None]
  - DEATH [None]
  - HYPOTHERMIA [None]
  - MENINGIOMA [None]
  - DISTURBANCE IN ATTENTION [None]
  - LUNG DISORDER [None]
